FAERS Safety Report 15010183 (Version 1)
Quarter: 2018Q2

REPORT INFORMATION
  Report Type: Spontaneous
  Country: PL (occurrence: PL)
  Receive Date: 20180614
  Receipt Date: 20180614
  Transmission Date: 20180711
  Serious: Yes (Hospitalization)
  Sender: FDA-Public Use
  Company Number: PL-VIVIMED-2018SP004728

PATIENT

DRUGS (4)
  1. ZOLPIDEM [Suspect]
     Active Substance: ZOLPIDEM\ZOLPIDEM TARTRATE
     Dosage: 120 MG/DAY
     Route: 065
  2. ZOLPIDEM [Suspect]
     Active Substance: ZOLPIDEM\ZOLPIDEM TARTRATE
     Indication: SLEEP DISORDER
     Dosage: UNK
     Route: 065
     Dates: start: 201309, end: 201503
  3. ZOLPIDEM [Suspect]
     Active Substance: ZOLPIDEM\ZOLPIDEM TARTRATE
     Dosage: 5 MG/DAY
     Route: 065
  4. ZOLPIDEM [Suspect]
     Active Substance: ZOLPIDEM\ZOLPIDEM TARTRATE
     Dosage: UNK, DOSE REDUCED
     Route: 065

REACTIONS (17)
  - Affective disorder [Recovered/Resolved]
  - Epilepsy [Recovered/Resolved]
  - Affect lability [Recovered/Resolved]
  - Sleep disorder [Recovered/Resolved]
  - Thinking abnormal [Recovered/Resolved]
  - Pancreatitis acute [Recovered/Resolved]
  - Drug dependence [Recovered/Resolved]
  - Withdrawal syndrome [Recovered/Resolved]
  - Abnormal behaviour [Recovered/Resolved]
  - Somatic symptom disorder [Recovered/Resolved]
  - Mood swings [Recovered/Resolved]
  - Mental impairment [Recovered/Resolved]
  - Cognitive disorder [Recovered/Resolved]
  - Emotional poverty [Recovered/Resolved]
  - Speech disorder [Recovered/Resolved]
  - Mental disorder [Recovered/Resolved]
  - Drug abuse [Recovered/Resolved]

NARRATIVE: CASE EVENT DATE: 201409
